FAERS Safety Report 9434723 (Version 1)
Quarter: 2013Q3

REPORT INFORMATION
  Report Type: Report from Study
  Country: FR (occurrence: FR)
  Receive Date: 20130801
  Receipt Date: 20130801
  Transmission Date: 20140515
  Serious: Yes (Life-Threatening, Hospitalization)
  Sender: FDA-Public Use
  Company Number: FR-ASTELLAS-2012EU006584

PATIENT
  Sex: Female
  Weight: 46 kg

DRUGS (6)
  1. TACROLIMUS MR4 CAPSULES [Suspect]
     Indication: RENAL TRANSPLANT
     Dosage: 4 MG, UNKNOWN/D
     Route: 048
     Dates: start: 20120424
  2. IMUREL /00001501/ [Suspect]
     Indication: PROPHYLAXIS AGAINST TRANSPLANT REJECTION
     Dosage: 75 MG, UID/QD
     Route: 048
     Dates: start: 20111026, end: 20120607
  3. CORTICOSTEROID NOS [Suspect]
     Indication: RENAL TRANSPLANT
     Dosage: UNK
     Route: 048
  4. PREDNISOLONE [Concomitant]
     Indication: PROPHYLAXIS AGAINST TRANSPLANT REJECTION
     Dosage: 750 MG, UID/QD
     Route: 042
     Dates: start: 20120525, end: 20120527
  5. OMEPRAZOLE [Concomitant]
     Indication: GASTROOESOPHAGEAL REFLUX DISEASE
     Dosage: 40 MG, UID/QD
     Route: 048
     Dates: start: 20110825
  6. SEROPLEX [Concomitant]
     Indication: DEPRESSION
     Dosage: 10 MG, UID/QD
     Route: 048
     Dates: start: 20111026

REACTIONS (7)
  - Underdose [Recovered/Resolved]
  - Device ineffective [Recovering/Resolving]
  - Acute coronary syndrome [Recovered/Resolved with Sequelae]
  - Respiratory distress [Recovered/Resolved]
  - Cytomegalovirus infection [Recovered/Resolved]
  - Renal impairment [Recovered/Resolved]
  - Transplant rejection [Recovered/Resolved with Sequelae]
